FAERS Safety Report 6674464-7 (Version None)
Quarter: 2010Q2

REPORT INFORMATION
  Report Type: 
  Country: None (occurrence: None)
  Receive Date: 20100409
  Receipt Date: 20100406
  Transmission Date: 20101027
  Serious: Yes (Death, Other)
  Sender: FDA-Public Use
  Company Number: PHHY2010US20390

PATIENT
  Sex: Male
  Weight: 59.864 kg

DRUGS (4)
  1. EXJADE [Suspect]
     Indication: SMALL CELL LUNG CANCER STAGE UNSPECIFIED
     Dosage: 1250 MG, QD
     Route: 048
     Dates: start: 20100307, end: 20100327
  2. EXJADE [Suspect]
     Indication: IRON OVERLOAD
  3. ETOPOSIDE [Concomitant]
     Indication: SMALL CELL LUNG CANCER STAGE UNSPECIFIED
     Dosage: 100 MG D108 Q21D
     Route: 048
     Dates: start: 20100303, end: 20100311
  4. VICODIN [Concomitant]
     Route: 048

REACTIONS (2)
  - BONE MARROW DISORDER [None]
  - MALIGNANT NEOPLASM PROGRESSION [None]
